FAERS Safety Report 13150607 (Version 1)
Quarter: 2017Q1

REPORT INFORMATION
  Report Type: Spontaneous
  Country: US (occurrence: US)
  Receive Date: 20170125
  Receipt Date: 20170125
  Transmission Date: 20170428
  Serious: Yes (Hospitalization)
  Sender: FDA-Public Use
  Company Number: US-JNJFOC-20170120166

PATIENT
  Age: 43 Year
  Sex: Female
  Weight: 80.74 kg

DRUGS (17)
  1. TRAZODONE HYDROCHLORIDE. [Concomitant]
     Active Substance: TRAZODONE HYDROCHLORIDE
     Indication: ANTIDEPRESSANT THERAPY
     Route: 048
     Dates: start: 20130220
  2. EXCEDRIN [Concomitant]
     Active Substance: ACETAMINOPHEN\ASPIRIN\CAFFEINE
     Indication: HEADACHE
     Route: 048
     Dates: start: 20160419
  3. LEVSIN [Concomitant]
     Active Substance: HYOSCYAMINE SULFATE
     Indication: PROPHYLAXIS
     Route: 048
     Dates: start: 20160419
  4. TRAMADOL HCL [Concomitant]
     Active Substance: TRAMADOL HYDROCHLORIDE
     Indication: ANALGESIC THERAPY
     Route: 048
     Dates: start: 20160419
  5. SPIRONOLACTONE. [Concomitant]
     Active Substance: SPIRONOLACTONE
     Indication: RENAL DISORDER
     Route: 048
     Dates: start: 20160419
  6. MONTELUKAST SODIUM. [Concomitant]
     Active Substance: MONTELUKAST SODIUM
     Indication: ASTHMA
     Route: 048
     Dates: start: 20161019
  7. BENTYL [Concomitant]
     Active Substance: DICYCLOMINE HYDROCHLORIDE
     Indication: GASTROENTERITIS
     Route: 048
     Dates: start: 20161210
  8. CANASA [Concomitant]
     Active Substance: MESALAMINE
     Route: 054
     Dates: start: 20160930
  9. REMICADE [Suspect]
     Active Substance: INFLIXIMAB
     Indication: COLITIS ULCERATIVE
     Route: 042
     Dates: start: 20161130
  10. ZYRTEC-D [Concomitant]
     Active Substance: CETIRIZINE HYDROCHLORIDE\PSEUDOEPHEDRINE HYDROCHLORIDE
     Indication: HYPERSENSITIVITY
     Route: 048
     Dates: start: 20150826
  11. LYRICA [Concomitant]
     Active Substance: PREGABALIN
     Indication: FIBROMYALGIA
     Route: 048
     Dates: start: 20110519
  12. CYMBALTA [Concomitant]
     Active Substance: DULOXETINE HYDROCHLORIDE
     Indication: FIBROMYALGIA
     Route: 048
     Dates: start: 20110519
  13. PREDNISONE. [Concomitant]
     Active Substance: PREDNISONE
     Indication: COLITIS ULCERATIVE
     Route: 048
     Dates: start: 20150909
  14. PROGESTERONE. [Concomitant]
     Active Substance: PROGESTERONE
     Indication: HORMONE THERAPY
     Route: 048
     Dates: start: 20160419
  15. LIALDA [Concomitant]
     Active Substance: MESALAMINE
     Route: 048
     Dates: start: 20110519
  16. ADVIL [Concomitant]
     Active Substance: IBUPROFEN
     Route: 048
     Dates: start: 20130220
  17. CETIRIZINE HCL [Concomitant]
     Active Substance: CETIRIZINE HYDROCHLORIDE
     Indication: MULTIPLE ALLERGIES
     Route: 048
     Dates: start: 20150826

REACTIONS (5)
  - Haematochezia [Recovered/Resolved]
  - Muscular weakness [Unknown]
  - Paraesthesia [Unknown]
  - Pneumonia [Unknown]
  - Flank pain [Unknown]

NARRATIVE: CASE EVENT DATE: 2016
